FAERS Safety Report 18460434 (Version 2)
Quarter: 2020Q4

REPORT INFORMATION
  Report Type: Spontaneous
  Country: US (occurrence: US)
  Receive Date: 20201104
  Receipt Date: 20201125
  Transmission Date: 20210114
  Serious: Yes (Other)
  Sender: FDA-Public Use
  Company Number: US-SA-2020SA302997

PATIENT

DRUGS (1)
  1. KEVZARA [Suspect]
     Active Substance: SARILUMAB
     Indication: RHEUMATOID ARTHRITIS
     Dosage: 200 MG, QOW
     Route: 058
     Dates: start: 20200817, end: 2020

REACTIONS (5)
  - Scleroderma [Unknown]
  - Exposure to SARS-CoV-2 [Recovered/Resolved]
  - Drug hypersensitivity [Unknown]
  - Psoriasis [Unknown]
  - SARS-CoV-2 test negative [Recovered/Resolved]

NARRATIVE: CASE EVENT DATE: 2020
